FAERS Safety Report 5242376-1 (Version None)
Quarter: 2007Q1

REPORT INFORMATION
  Report Type: 
  Country: None (occurrence: None)
  Receive Date: 20070221
  Receipt Date: 20070215
  Transmission Date: 20070707
  Serious: Yes (Hospitalization)
  Sender: FDA-Public Use
  Company Number: DE-BAYER-200710219BVD

PATIENT
  Age: 14 Year
  Sex: Male
  Weight: 60 kg

DRUGS (1)
  1. CIPROFLOXACIN HCL [Suspect]
     Indication: APPENDICITIS PERFORATED
     Route: 042
     Dates: start: 20061221, end: 20061222

REACTIONS (4)
  - EPIDERMAL NECROSIS [None]
  - EPIDERMOLYSIS [None]
  - ERYTHEMA [None]
  - HAEMATOMA [None]
